FAERS Safety Report 8767468 (Version 4)
Quarter: 2012Q4

REPORT INFORMATION
  Report Type: 
  Country: JP (occurrence: JP)
  Receive Date: 20120831
  Receipt Date: 20121029
  Transmission Date: 20130627
  Serious: Yes (Hospitalization, Other)
  Sender: FDA-Public Use
  Company Number: JP-MILLENNIUM PHARMACEUTICALS, INC.-2012-05954

PATIENT

DRUGS (7)
  1. VELCADE [Suspect]
     Indication: MULTIPLE MYELOMA
     Dosage: 1.5 mg/m2, UNK
     Route: 042
     Dates: start: 20120403
  2. VELCADE [Suspect]
     Dosage: 1.7 mg/m2, UNK
     Route: 042
     Dates: start: 20120706, end: 20120806
  3. DEXAMETHASONE [Suspect]
     Indication: MULTIPLE MYELOMA
     Dosage: 20 mg, UNK
     Route: 042
     Dates: start: 20120403, end: 20120806
  4. MS CONTIN [Concomitant]
     Route: 048
  5. BENZALIN [Concomitant]
     Route: 048
  6. ROZEREM [Concomitant]
     Route: 048
  7. RISPERDAL [Concomitant]
     Indication: DELIRIUM
     Dosage: UNK
     Route: 048
     Dates: start: 20120809

REACTIONS (3)
  - Epilepsy [Recovering/Resolving]
  - Delirium [Recovering/Resolving]
  - Depressed level of consciousness [Recovered/Resolved]
